FAERS Safety Report 10689150 (Version 7)
Quarter: 2015Q2

REPORT INFORMATION
  Report Type: Report from Study
  Country: BR (occurrence: BR)
  Receive Date: 20150105
  Receipt Date: 20150508
  Transmission Date: 20150821
  Serious: Yes (Hospitalization)
  Sender: FDA-Public Use
  Company Number: BR-ROCHE-1515418

PATIENT
  Age: 64 Year
  Sex: Female
  Weight: 64 kg

DRUGS (49)
  1. ENALAPRIL [Concomitant]
     Active Substance: ENALAPRIL
     Indication: HYPERTENSION
  2. AMLODIPINE [Concomitant]
     Active Substance: AMLODIPINE BESYLATE
     Indication: HYPERTENSION
  3. OMEPRAZOLE. [Concomitant]
     Active Substance: OMEPRAZOLE
     Indication: PROPHYLAXIS
     Route: 065
     Dates: start: 20111027
  4. ONDASETRON [Concomitant]
     Active Substance: ONDANSETRON
     Route: 065
     Dates: start: 20141227, end: 20141228
  5. DRAMAMINE [Concomitant]
     Active Substance: DIMENHYDRINATE
     Indication: PROPHYLAXIS OF NAUSEA AND VOMITING
     Route: 065
     Dates: start: 20141224, end: 20141224
  6. MINERAL OIL. [Concomitant]
     Active Substance: MINERAL OIL
     Route: 065
     Dates: start: 20150102, end: 20150102
  7. CODEINE [Concomitant]
     Active Substance: CODEINE
     Route: 065
     Dates: start: 20150120, end: 20150122
  8. REGULAR INSULIN [Concomitant]
     Active Substance: INSULIN NOS
     Route: 065
     Dates: start: 20141229, end: 20141229
  9. ENOXAPARIN SODIUM. [Concomitant]
     Active Substance: ENOXAPARIN SODIUM
     Route: 065
     Dates: start: 20150116, end: 20150116
  10. ENOXAPARIN SODIUM. [Concomitant]
     Active Substance: ENOXAPARIN SODIUM
     Route: 065
     Dates: start: 20150118, end: 20150119
  11. AMPICILLIN [Concomitant]
     Active Substance: AMPICILLIN
     Route: 065
     Dates: start: 20141223, end: 20150105
  12. MINERAL OIL. [Concomitant]
     Active Substance: MINERAL OIL
     Route: 065
     Dates: start: 20150119, end: 20150122
  13. CALCIUM CARBONATE. [Concomitant]
     Active Substance: CALCIUM CARBONATE
     Route: 065
     Dates: start: 20150114, end: 20150122
  14. REGULAR INSULIN [Concomitant]
     Active Substance: INSULIN NOS
     Indication: HYPERGLYCAEMIA
     Route: 065
     Dates: start: 20141224, end: 20141224
  15. REGULAR INSULIN [Concomitant]
     Active Substance: INSULIN NOS
     Route: 065
     Dates: start: 20150112, end: 20150112
  16. DEXAMETHASONE. [Concomitant]
     Active Substance: DEXAMETHASONE
     Indication: PREMEDICATION
     Route: 065
     Dates: start: 20111027
  17. DEXAMETHASONE. [Concomitant]
     Active Substance: DEXAMETHASONE
     Indication: PROPHYLAXIS
     Route: 065
     Dates: start: 20140722
  18. DIPYRONE [Concomitant]
     Active Substance: DIPYRONE
     Route: 065
     Dates: start: 20141223, end: 20150122
  19. WARFARIN SODIUM. [Concomitant]
     Active Substance: WARFARIN SODIUM
     Indication: EMBOLISM
     Route: 065
     Dates: start: 20141226, end: 20141230
  20. HIRUDOID (BRAZIL) [Concomitant]
     Route: 065
     Dates: start: 20150119, end: 20150122
  21. PLACEBO [Suspect]
     Active Substance: UNSPECIFIED INGREDIENT
     Indication: HER-2 POSITIVE BREAST CANCER
     Dosage: LOADING DOSE
     Route: 042
     Dates: start: 20111027, end: 20111027
  22. AMITRIPTYLINE [Concomitant]
     Active Substance: AMITRIPTYLINE
     Route: 065
     Dates: start: 20150102, end: 20150102
  23. ENOXAPARIN SODIUM. [Concomitant]
     Active Substance: ENOXAPARIN SODIUM
     Indication: THROMBOSIS PROPHYLAXIS
     Route: 065
     Dates: start: 20150112, end: 20150113
  24. ENOXAPARIN SODIUM. [Concomitant]
     Active Substance: ENOXAPARIN SODIUM
     Route: 065
     Dates: start: 20150121, end: 20150121
  25. ENOXAPARIN SODIUM. [Concomitant]
     Active Substance: ENOXAPARIN SODIUM
     Route: 065
     Dates: start: 20141223, end: 20150109
  26. ONDASETRON [Concomitant]
     Active Substance: ONDANSETRON
     Route: 065
     Dates: start: 20141229, end: 20150122
  27. METOCLOPRAMIDE. [Concomitant]
     Active Substance: METOCLOPRAMIDE
     Indication: PROPHYLAXIS OF NAUSEA AND VOMITING
     Route: 065
     Dates: start: 20141224, end: 20141224
  28. MINERAL OIL. [Concomitant]
     Active Substance: MINERAL OIL
     Route: 065
     Dates: start: 20150104, end: 20150104
  29. PLACEBO [Suspect]
     Active Substance: UNSPECIFIED INGREDIENT
     Dosage: MAINTAINANCE DOSE?LAST DOSE PRIOR TO EVENT 17/DEC/2014
     Route: 042
     Dates: start: 20111117
  30. TRASTUZUMAB EMTANSINE [Suspect]
     Active Substance: ADO-TRASTUZUMAB EMTANSINE
     Indication: HER-2 POSITIVE BREAST CANCER
     Dosage: LAST DOSE PRIOR TO EVENT ON 17/DEC/2014. LAST DOSE 230.4MG
     Route: 042
     Dates: start: 20111027
  31. MORPHINE [Concomitant]
     Active Substance: MORPHINE
     Route: 065
     Dates: start: 20141230, end: 20141230
  32. TYLEX (BRAZIL) [Concomitant]
     Indication: PAIN IN EXTREMITY
     Route: 065
     Dates: start: 20150204
  33. DIPHENHYDRAMINE [Concomitant]
     Active Substance: DIPHENHYDRAMINE
     Indication: PREMEDICATION
     Route: 065
     Dates: start: 20111027
  34. METFORMIN [Concomitant]
     Active Substance: METFORMIN HYDROCHLORIDE
     Indication: DIABETES MELLITUS
     Route: 065
     Dates: start: 201109, end: 20150102
  35. TRAMADOLE [Concomitant]
     Route: 065
     Dates: start: 20141223, end: 20150102
  36. METOCLOPRAMIDE. [Concomitant]
     Active Substance: METOCLOPRAMIDE
     Route: 065
     Dates: start: 20141226, end: 20141230
  37. DEXCHLORPHENIRAMINE [Concomitant]
     Active Substance: DEXCHLORPHENIRAMINE
     Indication: NAUSEA
     Route: 065
     Dates: start: 20141227, end: 20141227
  38. MINERAL OIL. [Concomitant]
     Active Substance: MINERAL OIL
     Route: 065
     Dates: start: 20150108, end: 20150116
  39. DIOSMIN [Concomitant]
     Active Substance: DIOSMIN
     Indication: PAIN IN EXTREMITY
     Route: 065
     Dates: start: 20141010
  40. VITAMIN B COMPLEX [Concomitant]
     Active Substance: CYANOCOBALAMIN\DEXPANTHENOL\NIACINAMIDE\PYRIDOXINE HYDROCHLORIDE\RIBOFLAVIN 5^-PHOSPHATE SODIUM\THIAMINE HYDROCHLORIDE\VITAMIN B COMPLEX
     Indication: NEUROPATHY PERIPHERAL
     Route: 065
     Dates: start: 20120801, end: 20141214
  41. ONDASETRON [Concomitant]
     Active Substance: ONDANSETRON
     Indication: PROPHYLAXIS OF NAUSEA AND VOMITING
     Route: 065
     Dates: start: 20141224, end: 20141226
  42. REGULAR INSULIN [Concomitant]
     Active Substance: INSULIN NOS
     Route: 065
     Dates: start: 20141226, end: 20141226
  43. RANITIDINE [Concomitant]
     Active Substance: RANITIDINE\RANITIDINE HYDROCHLORIDE
     Indication: PREMEDICATION
     Route: 065
     Dates: start: 20111027
  44. ONDANSETRON [Concomitant]
     Active Substance: ONDANSETRON
     Indication: PREMEDICATION
     Route: 065
     Dates: start: 20111027
  45. HYDROCHLOROTHIAZIDE. [Concomitant]
     Active Substance: HYDROCHLOROTHIAZIDE
     Indication: HYPERTENSION
  46. ATENOLOL. [Concomitant]
     Active Substance: ATENOLOL
     Indication: HYPERTENSION
  47. AMITRIPTYLINE [Concomitant]
     Active Substance: AMITRIPTYLINE
     Route: 065
     Dates: start: 20150104, end: 20150121
  48. METOCLOPRAMIDE. [Concomitant]
     Active Substance: METOCLOPRAMIDE
     Route: 065
     Dates: start: 20150104, end: 20150104
  49. MINERAL OIL. [Concomitant]
     Active Substance: MINERAL OIL
     Route: 065
     Dates: start: 20150106, end: 20150106

REACTIONS (2)
  - Erysipelas [Recovered/Resolved]
  - Abscess limb [Recovered/Resolved]

NARRATIVE: CASE EVENT DATE: 20141223
